FAERS Safety Report 4606605-7 (Version None)
Quarter: 2005Q2

REPORT INFORMATION
  Report Type: 
  Country: None (occurrence: None)
  Receive Date: 20050223
  Receipt Date: 20040614
  Transmission Date: 20051028
  Serious: Yes (Disabling)
  Sender: FDA-Public Use
  Company Number: WAES 0406USA01495

PATIENT
  Age: 73 Year
  Sex: Female

DRUGS (7)
  1. ZOCOR [Suspect]
     Indication: BLOOD CHOLESTEROL INCREASED
     Dosage: 10 MG/DAILY/PO
     Route: 048
     Dates: start: 20020101, end: 20040101
  2. CELEBREX [Concomitant]
  3. GLUCOPHAGE [Concomitant]
  4. SINEQUAN [Concomitant]
  5. SYNTHROID [Concomitant]
  6. ASPIRIN [Concomitant]
  7. VERAPAMIL [Concomitant]

REACTIONS (2)
  - DIZZINESS [None]
  - HEADACHE [None]
